FAERS Safety Report 17377199 (Version 1)
Quarter: 2020Q1

REPORT INFORMATION
  Report Type: Spontaneous
  Country: US (occurrence: US)
  Receive Date: 20200205
  Receipt Date: 20200205
  Transmission Date: 20200409
  Serious: No
  Sender: FDA-Public Use
  Company Number: None

PATIENT
  Age: 63 Year
  Sex: Female
  Weight: 61.2 kg

DRUGS (6)
  1. D3 (4000 IU / DAY) [Concomitant]
  2. COQ10 (100MG/DAY) [Concomitant]
  3. ZOLPIDEM TARTARATE [Suspect]
     Active Substance: ZOLPIDEM TARTRATE
     Indication: INSOMNIA
     Dosage: ?          QUANTITY:1 TABLET(S);?
     Route: 048
     Dates: start: 20200130, end: 20200205
  4. LAMOTRIGINE. [Concomitant]
     Active Substance: LAMOTRIGINE
  5. XALATAN (EYEDROPS) [Concomitant]
  6. MG. 400MG/DAY [Concomitant]

REACTIONS (5)
  - Anxiety [None]
  - Dizziness [None]
  - Product substitution issue [None]
  - Tinnitus [None]
  - Sedation [None]

NARRATIVE: CASE EVENT DATE: 20200130
